FAERS Safety Report 6426463-8 (Version None)
Quarter: 2009Q4

REPORT INFORMATION
  Report Type: 
  Country: None (occurrence: None)
  Receive Date: 20091103
  Receipt Date: 20091103
  Transmission Date: 20100525
  Serious: Yes (Life-Threatening, Hospitalization)
  Sender: FDA-Public Use
  Company Number: None

PATIENT
  Age: 21 Year
  Sex: Male
  Weight: 54.4316 kg

DRUGS (2)
  1. PRISTIQ [Suspect]
     Indication: AFFECTIVE DISORDER
     Dosage: 1 PILL ONCE IN THE AM PO
     Route: 048
     Dates: start: 20091015, end: 20091015
  2. PRISTIQ [Suspect]
     Indication: FIBROMYALGIA
     Dosage: 1 PILL ONCE IN THE AM PO
     Route: 048
     Dates: start: 20091015, end: 20091015

REACTIONS (8)
  - ANGER [None]
  - EMOTIONAL DISORDER [None]
  - FEELING ABNORMAL [None]
  - HEADACHE [None]
  - HYPERSENSITIVITY [None]
  - INSOMNIA [None]
  - NERVOUS SYSTEM DISORDER [None]
  - SEROTONIN SYNDROME [None]
